FAERS Safety Report 9640066 (Version 1)
Quarter: 2013Q4

REPORT INFORMATION
  Report Type: Spontaneous
  Country: GB (occurrence: GB)
  Receive Date: 20131023
  Receipt Date: 20131023
  Transmission Date: 20140711
  Serious: Yes (Death, Hospitalization)
  Sender: FDA-Public Use
  Company Number: GB-ROCHE-1292047

PATIENT
  Age: 79 Year
  Sex: Female

DRUGS (14)
  1. MABTHERA [Suspect]
     Indication: RHEUMATOID ARTHRITIS
     Route: 042
     Dates: start: 20110509, end: 20110509
  2. FUROSEMIDE [Concomitant]
     Route: 065
  3. BISOPROLOL [Concomitant]
     Route: 065
  4. CO-CODAMOL [Concomitant]
     Route: 065
  5. GABAPENTIN [Concomitant]
     Route: 065
  6. IBANDRONIC ACID [Concomitant]
     Route: 065
  7. LANSOPRAZOLE [Concomitant]
     Route: 065
  8. LEFLUNOMIDE [Concomitant]
     Route: 065
  9. PARACETAMOL [Concomitant]
     Route: 065
  10. PREDNISOLONE [Concomitant]
     Route: 065
  11. PREDNISOLONE [Concomitant]
     Route: 065
  12. SPIRONOLACTONE [Concomitant]
     Route: 065
  13. TRAMADOL [Concomitant]
     Route: 065
  14. WARFARIN SODIUM [Concomitant]
     Route: 065

REACTIONS (6)
  - Acute coronary syndrome [Fatal]
  - Pneumonia [Fatal]
  - Atrial fibrillation [Unknown]
  - Confusional state [Unknown]
  - Dyspnoea [Unknown]
  - Musculoskeletal pain [Unknown]
